FAERS Safety Report 5344451-X (Version None)
Quarter: 2007Q2

REPORT INFORMATION
  Report Type: 
  Country: None (occurrence: None)
  Receive Date: 20070604
  Receipt Date: 20070525
  Transmission Date: 20071010
  Serious: Yes (Hospitalization)
  Sender: FDA-Public Use
  Company Number: US-AMGEN-STX222770

PATIENT
  Sex: Female

DRUGS (2)
  1. ENBREL [Suspect]
     Indication: RHEUMATOID ARTHRITIS
     Route: 058
     Dates: start: 19981201
  2. ENBREL [Suspect]
     Route: 058
     Dates: start: 20060101

REACTIONS (4)
  - HIP ARTHROPLASTY [None]
  - INJECTION SITE PAIN [None]
  - JOINT STABILISATION [None]
  - SPINAL FUSION SURGERY [None]
